FAERS Safety Report 5711355-X (Version None)
Quarter: 2008Q2

REPORT INFORMATION
  Report Type: 
  Country: None (occurrence: None)
  Receive Date: 20080421
  Receipt Date: 20080411
  Transmission Date: 20081010
  Serious: Yes (Other)
  Sender: FDA-Public Use
  Company Number: B0515456A

PATIENT
  Age: 71 Year
  Sex: Female

DRUGS (2)
  1. FONDAPARINUX [Suspect]
     Dosage: 2.5MG FOUR TIMES PER DAY
     Route: 058
     Dates: start: 20070401
  2. NADROPARIN [Suspect]
     Dosage: .3MG PER DAY
     Route: 058
     Dates: start: 20040201

REACTIONS (3)
  - DEEP VEIN THROMBOSIS [None]
  - DRUG SPECIFIC ANTIBODY PRESENT [None]
  - HEPARIN-INDUCED THROMBOCYTOPENIA [None]
